FAERS Safety Report 5331622-1 (Version None)
Quarter: 2007Q2

REPORT INFORMATION
  Report Type: 
  Country: None (occurrence: None)
  Receive Date: 20070522
  Receipt Date: 20070516
  Transmission Date: 20071010
  Serious: Yes (Other)
  Sender: FDA-Public Use
  Company Number: US-PFIZER INC-2007038955

PATIENT
  Age: 35 Year
  Sex: Male

DRUGS (2)
  1. GEODON [Suspect]
  2. ADDERALL 10 [Concomitant]

REACTIONS (2)
  - SURGERY [None]
  - URINARY RETENTION [None]
